FAERS Safety Report 6062141-5 (Version None)
Quarter: 2009Q1

REPORT INFORMATION
  Report Type: 
  Country: None (occurrence: None)
  Receive Date: 20090130
  Receipt Date: 20090130
  Transmission Date: 20090719
  Serious: Yes (Other)
  Sender: FDA-Public Use
  Company Number: None

PATIENT
  Sex: Male
  Weight: 84 kg

DRUGS (1)
  1. SINGULAIR [Suspect]
     Indication: ASTHMA
     Dates: start: 20040921, end: 20080403

REACTIONS (5)
  - ANGER [None]
  - DEPRESSION [None]
  - MENTAL DISORDER [None]
  - PSYCHOMOTOR SKILLS IMPAIRED [None]
  - SELF ESTEEM DECREASED [None]
